FAERS Safety Report 9538082 (Version 2)
Quarter: 2013Q4

REPORT INFORMATION
  Report Type: Spontaneous
  Country: US (occurrence: US)
  Receive Date: 20130920
  Receipt Date: 20131104
  Transmission Date: 20140711
  Serious: Yes (Hospitalization)
  Sender: FDA-Public Use
  Company Number: US-BIOGENIDEC-2013BI084607

PATIENT
  Age: 49 Year
  Sex: Female

DRUGS (25)
  1. TYSABRI [Suspect]
     Indication: MULTIPLE SCLEROSIS
     Route: 042
     Dates: start: 20080619, end: 20081106
  2. TYSABRI [Suspect]
     Indication: MULTIPLE SCLEROSIS
     Route: 042
     Dates: start: 20120315
  3. ALBUTEROL [Concomitant]
  4. ADDERALL [Concomitant]
  5. LIPITOR [Concomitant]
  6. CHOLINE FENOFIBRATE [Concomitant]
  7. DOXYCYCLINE [Concomitant]
  8. NEXIUM [Concomitant]
  9. PREMPRO [Concomitant]
  10. NORCO [Concomitant]
  11. ZESTRIL [Concomitant]
  12. LITHIUM [Concomitant]
  13. CLARITIN [Concomitant]
  14. ATIVAN [Concomitant]
  15. NAMENDA [Concomitant]
  16. SAVELLA [Concomitant]
  17. NASONEX [Concomitant]
  18. SINGULAIR [Concomitant]
  19. VESICARE [Concomitant]
  20. ZANAFLEX [Concomitant]
  21. TOPAMAX [Concomitant]
  22. TRAZODONE [Concomitant]
  23. ZALEPLON [Concomitant]
  24. VILAZODONE [Concomitant]
  25. ZIPRASIDONE [Concomitant]

REACTIONS (2)
  - Migraine [Unknown]
  - Ankle arthroplasty [Recovered/Resolved]
